FAERS Safety Report 6960886-3 (Version None)
Quarter: 2010Q3

REPORT INFORMATION
  Report Type: 
  Country: None (occurrence: None)
  Receive Date: 20100901
  Receipt Date: 20100823
  Transmission Date: 20110219
  Serious: Yes (Other)
  Sender: FDA-Public Use
  Company Number: US-PFIZER INC-2010080199

PATIENT
  Age: 43 Year
  Sex: Female

DRUGS (4)
  1. GEODON [Suspect]
     Indication: BIPOLAR DISORDER
     Dosage: 80MG IN MORNING AND 160MG AT BEDTIME
     Dates: start: 20090101, end: 20100516
  2. PRISTIQ [Concomitant]
     Dosage: 50 MG, 1X/DAY
  3. BUSPAR [Concomitant]
     Dosage: 10 MG, 3X/DAY
  4. VISTARIL [Concomitant]
     Dosage: 100 MG, 3X/DAY

REACTIONS (2)
  - TARDIVE DYSKINESIA [None]
  - WEIGHT DECREASED [None]
